FAERS Safety Report 4623463-5 (Version None)
Quarter: 2005Q1

REPORT INFORMATION
  Report Type: 
  Country: None (occurrence: None)
  Receive Date: 20050330
  Receipt Date: 20050322
  Transmission Date: 20050727
  Serious: Yes (Hospitalization)
  Sender: FDA-Public Use
  Company Number: 2005-03-1576

PATIENT
  Age: 32 Year
  Sex: Female

DRUGS (9)
  1. CLARITIN REDITABS [Suspect]
     Indication: SEASONAL ALLERGY
     Dosage: 10 MG ORAL
     Route: 048
     Dates: start: 20050312
  2. FLOMOX (CEFCAPENE PIVOXIL HCL) TABLETS [Suspect]
     Indication: INFLUENZA
     Dosage: 300 MG ORAL
     Route: 048
     Dates: start: 20050316
  3. BECLOMETHASONE DIPROPIONATE NASAL SOLUTION NASAL SPRAY [Concomitant]
  4. TRANSAMIN CAPSULES [Suspect]
     Indication: INFLUENZA
     Dosage: 1500 MG ORAL
     Route: 048
     Dates: start: 20050316
  5. TAMIFLU (OSELTAMIVIR) CAPSULES [Suspect]
     Indication: INFLUENZA
     Dosage: 150 MG ORAL
     Route: 048
     Dates: start: 20050316
  6. ACETAMINOPHEN [Suspect]
     Indication: INFLUENZA
     Dosage: 400 MG ORAL
     Route: 048
     Dates: start: 20050316
  7. KN SOL. 3B INJECTABLE [Suspect]
     Indication: INFLUENZA
     Dosage: 500 ML INTRAVENOUS
     Route: 042
     Dates: start: 20050316
  8. FOSMICIN INJECTABLES [Suspect]
     Indication: INFLUENZA
     Dosage: 1 G INTRAVENOUS
     Route: 042
     Dates: start: 20050316
  9. VITAMIN B 1-6-12 [Suspect]
     Indication: INFLUENZA
     Dosage: 1 A INTRAVENOUS
     Route: 042
     Dates: start: 20050316

REACTIONS (6)
  - HEPATITIS [None]
  - MOUTH HAEMORRHAGE [None]
  - NAUSEA [None]
  - PNEUMONIA MYCOPLASMAL [None]
  - STEVENS-JOHNSON SYNDROME [None]
  - THIRST [None]
